FAERS Safety Report 13147567 (Version 2)
Quarter: 2017Q1

REPORT INFORMATION
  Report Type: Report from Study
  Country: US (occurrence: US)
  Receive Date: 20170124
  Receipt Date: 20170124
  Transmission Date: 20170428
  Serious: No
  Sender: FDA-Public Use
  Company Number: US-AMGEN-USASL2016165568

PATIENT
  Age: 84 Year
  Sex: Female

DRUGS (1)
  1. REPATHA [Suspect]
     Active Substance: EVOLOCUMAB
     Indication: BLOOD CHOLESTEROL INCREASED
     Dosage: 140 MG, Q2WK
     Route: 065

REACTIONS (7)
  - Discomfort [Recovering/Resolving]
  - Muscular weakness [Recovering/Resolving]
  - Musculoskeletal pain [Recovering/Resolving]
  - Dysstasia [Recovering/Resolving]
  - Paraesthesia [Recovering/Resolving]
  - Muscle spasms [Recovering/Resolving]
  - Muscle tightness [Recovering/Resolving]
